FAERS Safety Report 16451150 (Version 1)
Quarter: 2019Q3

REPORT INFORMATION
  Report Type: Spontaneous
  Country: US (occurrence: US)
  Receive Date: 20190618
  Receipt Date: 20190618
  Transmission Date: 20191004
  Serious: Yes (Hospitalization)
  Sender: FDA-Public Use
  Company Number: None

PATIENT
  Age: 67 Year
  Sex: Female

DRUGS (22)
  1. CALCIUM [Concomitant]
     Active Substance: CALCIUM
  2. BENICAR [Concomitant]
     Active Substance: OLMESARTAN MEDOXOMIL
  3. COENZYME Q10 [Concomitant]
     Active Substance: UBIDECARENONE
  4. KRILL OIL [Concomitant]
     Active Substance: DIETARY SUPPLEMENT\KRILL OIL
  5. LEVOTHYROXINE. [Concomitant]
     Active Substance: LEVOTHYROXINE
  6. MAGNESIUM [Concomitant]
     Active Substance: MAGNESIUM
  7. MULTI-VITAMIN [Concomitant]
     Active Substance: .ALPHA.-TOCOPHEROL ACETATE, DL-\ASCORBIC ACID\CYANOCOBALAMIN\FLUORIDE ION\FOLIC ACID\NIACIN\PYRIDOXINE\RIBOFLAVIN\THIAMINE\VITAMIN A\VITAMIN D
  8. BACLOFEN. [Concomitant]
     Active Substance: BACLOFEN
  9. SPIRONOLACT [Concomitant]
     Active Substance: SPIRONOLACTONE
  10. SYNTHROID [Concomitant]
     Active Substance: LEVOTHYROXINE SODIUM
  11. TRAMADOL. [Concomitant]
     Active Substance: TRAMADOL
  12. DALFAMPRIDINE. [Suspect]
     Active Substance: DALFAMPRIDINE
     Indication: MULTIPLE SCLEROSIS
     Dosage: ?          OTHER FREQUENCY:EVERY 12 HOURS;?
     Route: 048
     Dates: start: 20150608
  13. CULTURELLE [Concomitant]
     Active Substance: LACTOBACILLUS RHAMNOSUS
  14. OCUVITE [Concomitant]
     Active Substance: VITAMINS
  15. XANAX [Concomitant]
     Active Substance: ALPRAZOLAM
  16. CRANBERRY. [Concomitant]
     Active Substance: CRANBERRY
  17. FISH OIL [Concomitant]
     Active Substance: FISH OIL
  18. PROGESTERONE. [Concomitant]
     Active Substance: PROGESTERONE
  19. PROBIOTIC [Concomitant]
     Active Substance: PROBIOTICS NOS
  20. VITAMIN B/B12/D [Concomitant]
  21. AMBIEN [Concomitant]
     Active Substance: ZOLPIDEM TARTRATE
  22. AUBAGIO [Concomitant]
     Active Substance: TERIFLUNOMIDE

REACTIONS (2)
  - Urinary tract infection [None]
  - Movement disorder [None]

NARRATIVE: CASE EVENT DATE: 20190618
